FAERS Safety Report 18692923 (Version 1)
Quarter: 2021Q1

REPORT INFORMATION
  Report Type: Spontaneous
  Country: US (occurrence: US)
  Receive Date: 20210104
  Receipt Date: 20210104
  Transmission Date: 20210419
  Serious: No
  Sender: FDA-Public Use
  Company Number: US-AMGEN-USASP2020212658

PATIENT
  Age: 75 Year
  Sex: Male
  Weight: 62.59 kg

DRUGS (1)
  1. XGEVA [Suspect]
     Active Substance: DENOSUMAB
     Indication: METASTASES TO BONE
     Dosage: 120 MILLIGRAM, Q3MO
     Route: 065

REACTIONS (2)
  - Off label use [Unknown]
  - Pain in jaw [Unknown]
